FAERS Safety Report 14406395 (Version 1)
Quarter: 2018Q1

REPORT INFORMATION
  Report Type: Spontaneous
  Country: FR (occurrence: FR)
  Receive Date: 20180118
  Receipt Date: 20180118
  Transmission Date: 20180509
  Serious: Yes (Other)
  Sender: FDA-Public Use
  Company Number: FR-GLAXOSMITHKLINE-FR2018004622

PATIENT
  Age: 31 Year
  Sex: Female
  Weight: 94 kg

DRUGS (1)
  1. LAMICTAL [Suspect]
     Active Substance: LAMOTRIGINE
     Indication: EPILEPSY
     Dosage: 100MG / DAY INCREASED TO 200MG / DAY DURING PREGNANCY
     Route: 048

REACTIONS (4)
  - Breech presentation [Not Recovered/Not Resolved]
  - Uterine hypertonus [Recovered/Resolved]
  - Premature rupture of membranes [Not Recovered/Not Resolved]
  - Premature delivery [Not Recovered/Not Resolved]

NARRATIVE: CASE EVENT DATE: 20170610
